FAERS Safety Report 6509873-X (Version None)
Quarter: 2009Q4

REPORT INFORMATION
  Report Type: 
  Country: None (occurrence: None)
  Receive Date: 20091222
  Receipt Date: 20091215
  Transmission Date: 20100525
  Serious: Yes (Death)
  Sender: FDA-Public Use
  Company Number: JP-JNJFOC-20091205360

PATIENT
  Sex: Male

DRUGS (5)
  1. TOPIRAMATE [Suspect]
     Indication: EPILEPSY
     Route: 048
  2. ALEVIATIN [Concomitant]
     Indication: EPILEPSY
     Route: 048
  3. RINDERON [Concomitant]
     Route: 048
  4. TAKEPRON [Concomitant]
     Route: 048
  5. MAGLAX [Concomitant]
     Route: 048

REACTIONS (2)
  - BRAIN NEOPLASM [None]
  - WHITE BLOOD CELL COUNT INCREASED [None]
